FAERS Safety Report 6726435-X (Version None)
Quarter: 2010Q2

REPORT INFORMATION
  Report Type: 
  Country: None (occurrence: None)
  Receive Date: 20100514
  Receipt Date: 20100503
  Transmission Date: 20101027
  Serious: Yes (Hospitalization)
  Sender: FDA-Public Use
  Company Number: US-PURDUE-USA-2010-0043726

PATIENT
  Sex: Female

DRUGS (1)
  1. OXYCONTIN [Suspect]
     Indication: NECK PAIN
     Dosage: 160 MG, SEE TEXT

REACTIONS (4)
  - DEHYDRATION [None]
  - DYSPNOEA [None]
  - HEART RATE DECREASED [None]
  - RESPIRATORY RATE DECREASED [None]
